FAERS Safety Report 12757062 (Version 2)
Quarter: 2017Q1

REPORT INFORMATION
  Report Type: Spontaneous
  Country: US (occurrence: US)
  Receive Date: 20160918
  Receipt Date: 20170227
  Transmission Date: 20170428
  Serious: No
  Sender: FDA-Public Use
  Company Number: US-CELGENEUS-USA-2016093473

PATIENT
  Age: 48 Year
  Sex: Male

DRUGS (2)
  1. OTEZLA [Suspect]
     Active Substance: APREMILAST
     Indication: PSORIATIC ARTHROPATHY
     Dosage: 60 MILLIGRAM
     Route: 048
     Dates: start: 20160712, end: 20160915
  2. OTEZLA [Suspect]
     Active Substance: APREMILAST
     Dosage: .5 TABLET
     Route: 048
     Dates: start: 2016

REACTIONS (7)
  - Wrong technique in product usage process [Recovered/Resolved]
  - Decreased appetite [Recovered/Resolved]
  - Depression [Recovered/Resolved]
  - Feeling abnormal [Recovered/Resolved]
  - Anxiety [Unknown]
  - Headache [Recovered/Resolved]
  - Diarrhoea [Recovered/Resolved]

NARRATIVE: CASE EVENT DATE: 201608
